APPROVED DRUG PRODUCT: HYDROCHLOROTHIAZIDE
Active Ingredient: HYDROCHLOROTHIAZIDE
Strength: 25MG
Dosage Form/Route: TABLET;ORAL
Application: A040809 | Product #001
Applicant: JUBILANT CADISTA PHARMACEUTICALS INC
Approved: Sep 4, 2007 | RLD: No | RS: No | Type: DISCN